FAERS Safety Report 8763423 (Version 2)
Quarter: 2012Q4

REPORT INFORMATION
  Report Type: Spontaneous
  Country: US (occurrence: None)
  Receive Date: 20120828
  Receipt Date: 20120905
  Transmission Date: 20130627
  Serious: Yes (Other)
  Sender: FDA-Public Use
  Company Number: USA/USA/12/0025516

PATIENT
  Age: 50 Year
  Sex: Female

DRUGS (5)
  1. DIVALPROEX SODIUM  DELAYED RELEASE [Suspect]
     Indication: COMPLEX PARTIAL SEIZURES
     Route: 048
  2. DIVALPROEX SODIUM  DELAYED RELEASE [Suspect]
     Indication: HYDROCEPHALUS
     Route: 048
  3. TRILEPTAL (OXCARBAZEPINE) [Concomitant]
  4. VITAMINS (KAPSOVIT) [Concomitant]
  5. CALCIUM (CALCIUM) [Concomitant]

REACTIONS (3)
  - Convulsion [None]
  - Capsule physical issue [None]
  - Product quality issue [None]
